FAERS Safety Report 26208682 (Version 1)
Quarter: 2025Q4

REPORT INFORMATION
  Report Type: Spontaneous
  Country: US (occurrence: US)
  Receive Date: 20251229
  Receipt Date: 20251229
  Transmission Date: 20260118
  Serious: No
  Sender: GALPHARM INTERNATIONAL
  Company Number: US-PERRIGO-25US010524

PATIENT
  Sex: Female

DRUGS (3)
  1. TIOCONAZOLE [Suspect]
     Active Substance: TIOCONAZOLE
     Indication: Vulvovaginal mycotic infection
     Dosage: 300 MG, SINGLE
     Route: 067
     Dates: start: 20250821, end: 20250821
  2. TIOCONAZOLE [Suspect]
     Active Substance: TIOCONAZOLE
     Indication: Vaginal discharge
     Dosage: LITTLE BIT, SINGLE
     Route: 067
     Dates: start: 20250825, end: 20250825
  3. ESTRADIOL [Suspect]
     Active Substance: ESTRADIOL
     Indication: Product used for unknown indication
     Dosage: UNKNOWN, EVERY 3 TO 4 DAYS
     Route: 067

REACTIONS (4)
  - Vaginal discharge [Not Recovered/Not Resolved]
  - Therapeutic product effect incomplete [Unknown]
  - Underdose [Unknown]
  - Drug interaction [Unknown]

NARRATIVE: CASE EVENT DATE: 20250801
